FAERS Safety Report 16936675 (Version 2)
Quarter: 2019Q4

REPORT INFORMATION
  Report Type: Spontaneous
  Country: US (occurrence: US)
  Receive Date: 20191018
  Receipt Date: 20191223
  Transmission Date: 20200122
  Serious: Yes (Other)
  Sender: FDA-Public Use
  Company Number: US-PFIZER INC-2019450901

PATIENT
  Age: 84 Year
  Sex: Female
  Weight: 61.23 kg

DRUGS (7)
  1. TYLENOL [Suspect]
     Active Substance: ACETAMINOPHEN
     Dosage: UNK, EVERY 3 WEEKS
     Dates: start: 20190408, end: 20190522
  2. BENADRYL [Suspect]
     Active Substance: DIPHENHYDRAMINE HYDROCHLORIDE
     Dosage: UNK, EVERY 3 WEEKS
     Dates: start: 20190408, end: 20190522
  3. CYTOXAN [Suspect]
     Active Substance: CYCLOPHOSPHAMIDE
     Indication: NEOPLASM MALIGNANT
     Dosage: UNK, EVERY 3 WEEKS
     Dates: start: 20190408, end: 20190522
  4. VINCRISTINE SULFATE. [Suspect]
     Active Substance: VINCRISTINE SULFATE
     Indication: NEOPLASM MALIGNANT
     Dosage: UNK, EVERY 3 WEEKS
     Dates: start: 20190408, end: 20190522
  5. RITUXAN [Suspect]
     Active Substance: RITUXIMAB
     Indication: NEOPLASM MALIGNANT
     Dosage: UNK, EVERY 3 WEEKS
     Dates: start: 20190408, end: 20190522
  6. DOXORUBICIN HCL [Suspect]
     Active Substance: DOXORUBICIN HYDROCHLORIDE
     Indication: NEOPLASM MALIGNANT
     Dosage: UNK UNK, EVERY 3 WEEKS
     Dates: start: 20190408, end: 20190522
  7. DEXAMETHASONE. [Suspect]
     Active Substance: DEXAMETHASONE
     Dosage: UNK, EVERY 3 WEEKS
     Dates: start: 20190408, end: 20190522

REACTIONS (1)
  - Pulmonary mycosis [Not Recovered/Not Resolved]

NARRATIVE: CASE EVENT DATE: 20190712
